FAERS Safety Report 6390633-8 (Version None)
Quarter: 2009Q4

REPORT INFORMATION
  Report Type: 
  Country: None (occurrence: None)
  Receive Date: 20091006
  Receipt Date: 20090923
  Transmission Date: 20100525
  Serious: Yes (Other)
  Sender: FDA-Public Use
  Company Number: US-ELI_LILLY_AND_COMPANY-US200909004053

PATIENT
  Sex: Female

DRUGS (10)
  1. FORTEO [Suspect]
     Indication: OSTEOPOROSIS
     Dosage: 20 UG, DAILY (1/D)
  2. FORTEO [Suspect]
     Dosage: 20 UG, DAILY (1/D)
     Dates: start: 20090819, end: 20090901
  3. FORTEO [Suspect]
     Dosage: UNK, UNKNOWN
     Route: 065
     Dates: start: 20090901
  4. TYLENOL (CAPLET) [Concomitant]
     Dosage: UNK, AS NEEDED
  5. VITAMIN D [Concomitant]
  6. CALCIUM [Concomitant]
  7. ALBUTEROL [Concomitant]
  8. VALIUM [Concomitant]
  9. ACTONEL [Concomitant]
  10. BONIVA [Concomitant]

REACTIONS (15)
  - ARRHYTHMIA [None]
  - BOWEL MOVEMENT IRREGULARITY [None]
  - BRADYCARDIA [None]
  - CONSTIPATION [None]
  - DEPRESSED MOOD [None]
  - DIARRHOEA [None]
  - FATIGUE [None]
  - FEELING ABNORMAL [None]
  - FEELING JITTERY [None]
  - HEART RATE INCREASED [None]
  - HYPERTENSION [None]
  - NERVOUSNESS [None]
  - PHARYNGEAL OEDEMA [None]
  - ROAD TRAFFIC ACCIDENT [None]
  - TACHYCARDIA [None]
